FAERS Safety Report 7455581-0 (Version None)
Quarter: 2011Q2

REPORT INFORMATION
  Report Type: 
  Country: None (occurrence: None)
  Receive Date: 20110503
  Receipt Date: 20110426
  Transmission Date: 20111010
  Serious: Yes (Hospitalization, Other)
  Sender: FDA-Public Use
  Company Number: JP-ROCHE-773306

PATIENT
  Sex: Female
  Weight: 46 kg

DRUGS (6)
  1. HIRUDOID [Concomitant]
     Dosage: PROPER QUANTITY
     Route: 003
     Dates: start: 20110318
  2. MYSER [Concomitant]
     Dosage: PROPER QUANTITY
     Route: 003
     Dates: start: 20110326
  3. PEGINTERFERON ALFA-2A [Suspect]
     Indication: HEPATITIS C
     Route: 058
     Dates: start: 20110226, end: 20110409
  4. BETAMETHASONE [Concomitant]
     Dosage: PROPER QUANTITY
     Route: 003
     Dates: start: 20110312
  5. RIBAVIRIN [Suspect]
     Indication: HEPATITIS C
     Route: 048
     Dates: start: 20110226, end: 20110416
  6. LOXOPROFEN SODIUM [Suspect]
     Indication: PYREXIA
     Dosage: SINGLE USE
     Route: 048
     Dates: start: 20110201

REACTIONS (11)
  - DECREASED APPETITE [None]
  - PYREXIA [None]
  - HEPATIC FUNCTION ABNORMAL [None]
  - SKIN DISORDER [None]
  - MALAISE [None]
  - ARTHRALGIA [None]
  - HEADACHE [None]
  - MUSCULAR WEAKNESS [None]
  - SEASONAL ALLERGY [None]
  - NAUSEA [None]
  - VOMITING [None]
